FAERS Safety Report 10380307 (Version 1)
Quarter: 2014Q3

REPORT INFORMATION
  Report Type: Spontaneous
  Country: US (occurrence: None)
  Receive Date: 20140812
  Receipt Date: 20140812
  Transmission Date: 20150326
  Serious: No
  Sender: FDA-Public Use
  Company Number: None

PATIENT
  Age: 54 Year
  Sex: Female
  Weight: 145.15 kg

DRUGS (1)
  1. FUROSEMIDE 40MG RANBAXY [Suspect]
     Active Substance: FUROSEMIDE
     Indication: CARDIAC FAILURE CONGESTIVE
     Dosage: 1 PILL  ONCE DAILY  TAKEN BY MOUTH
     Route: 048

REACTIONS (2)
  - Product quality issue [None]
  - Drug effect decreased [None]

NARRATIVE: CASE EVENT DATE: 20140804
